FAERS Safety Report 4615295-9 (Version None)
Quarter: 2005Q1

REPORT INFORMATION
  Report Type: 
  Country: None (occurrence: None)
  Receive Date: 20050322
  Receipt Date: 20050115
  Transmission Date: 20050727
  Serious: Yes (Other)
  Sender: FDA-Public Use
  Company Number: US-AMGEN-KDL112270

PATIENT
  Sex: Female

DRUGS (6)
  1. ENBREL [Suspect]
     Indication: PSORIATIC ARTHROPATHY
     Route: 058
     Dates: start: 19990101, end: 20031112
  2. ESTRACE [Concomitant]
  3. PROVERA [Concomitant]
  4. AVAPRO [Concomitant]
  5. LORTAB [Concomitant]
  6. TORADOL [Concomitant]

REACTIONS (6)
  - ATONIC SEIZURES [None]
  - EXCORIATION [None]
  - FALL [None]
  - HEADACHE [None]
  - HERPES ZOSTER [None]
  - SPINAL OSTEOARTHRITIS [None]
